FAERS Safety Report 9158040 (Version 1)
Quarter: 2013Q1

REPORT INFORMATION
  Report Type: Spontaneous
  Country: US (occurrence: None)
  Receive Date: 20130211
  Receipt Date: 20130211
  Transmission Date: 20140127
  Serious: Yes (Other)
  Sender: FDA-Public Use
  Company Number: US-119416

PATIENT
  Sex: 0

DRUGS (1)
  1. TRIESENCE INJECTION (TRIAMCINOLONE 40 MG/ML) [Suspect]
     Route: 031

REACTIONS (1)
  - Non-infectious endophthalmitis [None]
